FAERS Safety Report 5123313-7 (Version None)
Quarter: 2006Q4

REPORT INFORMATION
  Report Type: 
  Country: None (occurrence: None)
  Receive Date: 20061009
  Receipt Date: 20060803
  Transmission Date: 20070319
  Serious: Yes (Other)
  Sender: FDA-Public Use
  Company Number: US-BRISTOL-MYERS SQUIBB COMPANY-13466339

PATIENT
  Age: 74 Year
  Sex: Male

DRUGS (14)
  1. KENALOG-40 [Suspect]
     Indication: MACULAR OEDEMA
     Route: 031
     Dates: start: 20060519, end: 20060519
  2. AVANDIA [Concomitant]
     Dosage: QPM
  3. AGGRENOX [Concomitant]
     Route: 048
  4. RAZADYNE [Concomitant]
  5. FEOSOL [Concomitant]
  6. ASPIRIN [Concomitant]
     Route: 048
  7. TUMS [Concomitant]
  8. LIPITOR [Concomitant]
  9. ZYMAR [Concomitant]
     Dosage: W.A X3DAYS
     Route: 047
     Dates: start: 20060519, end: 20060522
  10. NORVASC [Concomitant]
  11. NAMENDA [Concomitant]
  12. HUMULIN INSULIN [Concomitant]
  13. COZAAR [Concomitant]
  14. ISOSORBIDE [Concomitant]

REACTIONS (1)
  - ENDOPHTHALMITIS [None]
